FAERS Safety Report 7575615-2 (Version None)
Quarter: 2011Q2

REPORT INFORMATION
  Report Type: 
  Country: None (occurrence: None)
  Receive Date: 20110628
  Receipt Date: 20110614
  Transmission Date: 20111010
  Serious: Yes (Other)
  Sender: FDA-Public Use
  Company Number: KR-MYLANLABS-2011S1012299

PATIENT
  Age: 76 Year
  Sex: Male
  Weight: 48 kg

DRUGS (3)
  1. OXALIPLATIN [Suspect]
     Indication: COLON CANCER
     Route: 065
  2. FLUOROURACIL [Suspect]
     Indication: COLON CANCER
     Route: 065
  3. LEUCOVORIN CALCIUM [Suspect]
     Indication: COLON CANCER
     Route: 065

REACTIONS (1)
  - INTERSTITIAL LUNG DISEASE [None]
